FAERS Safety Report 22174815 (Version 1)
Quarter: 2023Q2

REPORT INFORMATION
  Report Type: Spontaneous
  Country: US (occurrence: US)
  Receive Date: 20230405
  Receipt Date: 20230405
  Transmission Date: 20230722
  Serious: No
  Sender: FDA-Public Use
  Company Number: US-ELI_LILLY_AND_COMPANY-US202304001636

PATIENT
  Sex: Female

DRUGS (2)
  1. MOUNJARO [Suspect]
     Active Substance: TIRZEPATIDE
     Indication: Weight decreased
     Dosage: 5 MG, UNKNOWN
     Route: 058
     Dates: start: 20230308
  2. MOUNJARO [Suspect]
     Active Substance: TIRZEPATIDE
     Indication: Insulin resistance

REACTIONS (2)
  - Off label use [Unknown]
  - Injection site urticaria [Recovered/Resolved]
